FAERS Safety Report 8905180 (Version 1)
Quarter: 2012Q4

REPORT INFORMATION
  Report Type: 
  Country: US (occurrence: US)
  Receive Date: 20121113
  Receipt Date: 20121113
  Transmission Date: 20130627
  Serious: No
  Sender: FDA-Public Use
  Company Number: US-009507513-1211USA001829

PATIENT
  Sex: Female

DRUGS (1)
  1. AZASITE [Suspect]
     Indication: MEIBOMIAN GLAND DYSFUNCTION
     Dosage: 2 drops in each eye for the first two days and then 1 drop in each eye for 28 days
     Route: 047

REACTIONS (3)
  - Inappropriate schedule of drug administration [Unknown]
  - Wrong technique in drug usage process [Unknown]
  - No adverse event [Unknown]
